FAERS Safety Report 19108882 (Version 1)
Quarter: 2021Q2

REPORT INFORMATION
  Report Type: Spontaneous
  Country: GB (occurrence: GB)
  Receive Date: 20210408
  Receipt Date: 20210408
  Transmission Date: 20210717
  Serious: Yes (Life-Threatening, Other)
  Sender: FDA-Public Use
  Company Number: GB-SUN PHARMACEUTICAL INDUSTRIES LTD-2021R1-290314

PATIENT
  Age: 17 Year
  Sex: Female

DRUGS (1)
  1. LEVETIRACETAM. [Suspect]
     Active Substance: LEVETIRACETAM
     Indication: SEIZURE
     Dosage: 500 MILLIGRAM, DAILY
     Route: 065

REACTIONS (11)
  - Acute kidney injury [Recovered/Resolved]
  - Ureteric stenosis [Unknown]
  - Diarrhoea [Recovered/Resolved]
  - Pallor [Recovered/Resolved]
  - Hydronephrosis [Unknown]
  - Tubulointerstitial nephritis [Recovered/Resolved]
  - Renal impairment [Recovered/Resolved]
  - Abdominal pain [Recovered/Resolved]
  - Vomiting [Recovered/Resolved]
  - Fatigue [Recovered/Resolved]
  - Back pain [Unknown]
